FAERS Safety Report 7746675-0 (Version None)
Quarter: 2011Q3

REPORT INFORMATION
  Report Type: 
  Country: None (occurrence: None)
  Receive Date: 20110913
  Receipt Date: 20110902
  Transmission Date: 20111222
  Serious: Yes (Other)
  Sender: FDA-Public Use
  Company Number: US-UCBSA-027330

PATIENT
  Sex: Female

DRUGS (4)
  1. LEVETIRACETAM [Concomitant]
  2. VIMPAT [Suspect]
     Indication: CONVULSION
     Route: 042
  3. DEPAKOTE [Concomitant]
  4. TRILEPTAL [Suspect]

REACTIONS (1)
  - TACHYCARDIA [None]
